FAERS Safety Report 19471358 (Version 2)
Quarter: 2021Q3

REPORT INFORMATION
  Report Type: Report from Study
  Country: US (occurrence: US)
  Receive Date: 20210628
  Receipt Date: 20210816
  Transmission Date: 20211014
  Serious: Yes (Hospitalization)
  Sender: FDA-Public Use
  Company Number: US-VIFOR (INTERNATIONAL) INC.-VIT-2021-05399

PATIENT
  Age: 69 Year
  Sex: Female
  Weight: 56.75 kg

DRUGS (4)
  1. TACROLIMUS. [Concomitant]
     Active Substance: TACROLIMUS
  2. VELTASSA [Suspect]
     Active Substance: PATIROMER
     Indication: HYPERKALAEMIA
     Route: 048
     Dates: start: 20210308
  3. TACROLIMUS. [Concomitant]
     Active Substance: TACROLIMUS
     Indication: LIVER TRANSPLANT
  4. TACROLIMUS. [Concomitant]
     Active Substance: TACROLIMUS

REACTIONS (4)
  - Faecaloma [Recovering/Resolving]
  - Constipation [Recovering/Resolving]
  - Abdominal pain lower [Unknown]
  - Faeces hard [Unknown]

NARRATIVE: CASE EVENT DATE: 202103
